FAERS Safety Report 17911323 (Version 1)
Quarter: 2020Q2

REPORT INFORMATION
  Report Type: Spontaneous
  Country: FR (occurrence: FR)
  Receive Date: 20200618
  Receipt Date: 20200618
  Transmission Date: 20200714
  Serious: Yes (Other)
  Sender: FDA-Public Use
  Company Number: FR-LUPIN PHARMACEUTICALS INC.-2020-02920

PATIENT
  Age: 9 Year
  Sex: Male

DRUGS (1)
  1. CETIRIZINE [Suspect]
     Active Substance: CETIRIZINE HYDROCHLORIDE
     Indication: PRODUCT USED FOR UNKNOWN INDICATION
     Dosage: 0.42 MILLIGRAM/KILOGRAM
     Route: 065

REACTIONS (7)
  - Tongue biting [Unknown]
  - Nystagmus [Unknown]
  - Headache [Unknown]
  - Fall [Unknown]
  - Psychotic disorder [Unknown]
  - Hypotonia [Unknown]
  - Urinary incontinence [Unknown]
